FAERS Safety Report 9723127 (Version 1)
Quarter: 2013Q4

REPORT INFORMATION
  Report Type: Spontaneous
  Country: US (occurrence: None)
  Receive Date: 20131127
  Receipt Date: 20131127
  Transmission Date: 20140711
  Serious: Yes (Other)
  Sender: FDA-Public Use
  Company Number: None

PATIENT
  Age: 86 Year
  Sex: Female
  Weight: 58.97 kg

DRUGS (6)
  1. NAMENDA [Suspect]
     Indication: DEMENTIA ALZHEIMER^S TYPE
     Dosage: 1 PILL, ALL COMBINATIONS WAS TO INCREASE TO 20 DAILY, THEN DECREASE
     Route: 048
     Dates: start: 20130502, end: 20130708
  2. TRIMETHOPRIM [Concomitant]
  3. CRANBERRY [Concomitant]
  4. MAG-OX [Concomitant]
  5. VITAMIN D [Concomitant]
  6. ALIGN [Concomitant]

REACTIONS (7)
  - Speech disorder [None]
  - Aggression [None]
  - Hallucination [None]
  - Dementia Alzheimer^s type [None]
  - Condition aggravated [None]
  - Restlessness [None]
  - Abnormal behaviour [None]
